FAERS Safety Report 8203396-8 (Version None)
Quarter: 2012Q1

REPORT INFORMATION
  Report Type: 
  Country: None (occurrence: None)
  Receive Date: 20120312
  Receipt Date: 20120307
  Transmission Date: 20120608
  Serious: Yes (Life-Threatening)
  Sender: FDA-Public Use
  Company Number: FR-ASTRAZENECA-2012SE15973

PATIENT
  Age: 26208 Day
  Sex: Male

DRUGS (10)
  1. HEPARIN SODIUM [Suspect]
     Indication: ARTERIOGRAM CORONARY
     Route: 013
     Dates: start: 20120203, end: 20120203
  2. CLOPIDOGREL BISULFATE AND ASPIRIN [Concomitant]
     Route: 048
  3. CARVEDILOL [Concomitant]
     Route: 048
  4. ISOSORBIDE DINITRATE [Concomitant]
     Indication: ARTERIOGRAM CORONARY
     Route: 022
     Dates: start: 20120203, end: 20120203
  5. XYLOCAINE [Suspect]
     Indication: ARTERIOGRAM CORONARY
     Dosage: ONCE/SINGLE ADMINISTRATION
     Route: 058
     Dates: start: 20120203, end: 20120203
  6. VISIPAQUE [Suspect]
     Indication: ARTERIOGRAM CORONARY
     Dosage: 270 MG OF IODINE / ML, 210 ML ONCE/SINGLE ADMINISTRATION
     Route: 013
     Dates: start: 20120203, end: 20120203
  7. PERINDOPRIL ERBUMINE [Concomitant]
     Route: 048
  8. ATORVASTATIN [Concomitant]
     Indication: DYSLIPIDAEMIA
     Route: 048
  9. ISOPTIN [Suspect]
     Indication: ARTERIOGRAM CORONARY
     Dosage: 5 MG / 2 ML, 1 DF ONCE/SINGLE ADMINISTRATION
     Route: 013
     Dates: start: 20120203, end: 20120203
  10. NEXIUM [Concomitant]
     Route: 048

REACTIONS (5)
  - HYPOTENSION [None]
  - BRADYCARDIA [None]
  - RESPIRATORY ARREST [None]
  - ERYTHEMA [None]
  - CARDIAC ARREST [None]
